FAERS Safety Report 4756806-2 (Version None)
Quarter: 2005Q3

REPORT INFORMATION
  Report Type: 
  Country: None (occurrence: None)
  Receive Date: 20050830
  Receipt Date: 20050815
  Transmission Date: 20060218
  Serious: Yes (Hospitalization)
  Sender: FDA-Public Use
  Company Number: GBWYE910916AUG05

PATIENT
  Sex: Female
  Weight: 66 kg

DRUGS (8)
  1. ENBREL [Suspect]
     Indication: RHEUMATOID ARTHRITIS
     Route: 058
     Dates: start: 20041027, end: 20050215
  2. PREDNISOLONE [Concomitant]
  3. OMEPRAZOLE [Concomitant]
  4. TRAMADOL HCL [Concomitant]
  5. RISEDRONATE [Concomitant]
  6. FUROSEMIDE [Concomitant]
  7. ROFECOXIB [Concomitant]
  8. LISINOPRIL [Concomitant]

REACTIONS (2)
  - LIVER DISORDER [None]
  - RENAL IMPAIRMENT [None]
